FAERS Safety Report 5217108-3 (Version None)
Quarter: 2007Q1

REPORT INFORMATION
  Report Type: 
  Country: None (occurrence: None)
  Receive Date: 20070119
  Receipt Date: 20070108
  Transmission Date: 20070707
  Serious: Yes (Hospitalization)
  Sender: FDA-Public Use
  Company Number: 2007AL000111

PATIENT
  Age: 59 Year
  Sex: Male

DRUGS (4)
  1. DICLOFENAC SODIUM [Suspect]
     Indication: BACK PAIN
     Dosage: 50 MG; TID; PO
     Route: 048
     Dates: start: 20061107, end: 20061107
  2. CO-CODAMOL [Concomitant]
  3. RAMIPRIL [Concomitant]
  4. TRAMADOL HCL [Concomitant]

REACTIONS (6)
  - CHEST PAIN [None]
  - FEELING COLD [None]
  - HYPERHIDROSIS [None]
  - HYPERSENSITIVITY [None]
  - NAUSEA [None]
  - TREMOR [None]
